FAERS Safety Report 8786040 (Version 2)
Quarter: 2012Q4

REPORT INFORMATION
  Report Type: 
  Country: NL (occurrence: NL)
  Receive Date: 20120914
  Receipt Date: 20121004
  Transmission Date: 20130627
  Serious: Yes (Hospitalization)
  Sender: FDA-Public Use
  Company Number: PHHY2012NL079346

PATIENT
  Sex: Female
  Weight: 71 kg

DRUGS (1)
  1. SANDOSTATIN LAR [Suspect]
     Indication: POST GASTRIC SURGERY SYNDROME
     Dosage: 30 mg once per 4 weeks

REACTIONS (1)
  - Gastric infection [Unknown]
